FAERS Safety Report 14656675 (Version 1)
Quarter: 2018Q1

REPORT INFORMATION
  Report Type: Report from Study
  Country: ES (occurrence: ES)
  Receive Date: 20180319
  Receipt Date: 20180319
  Transmission Date: 20180509
  Serious: Yes (Hospitalization)
  Sender: FDA-Public Use
  Company Number: ES-PFIZER INC-2018108698

PATIENT
  Age: 69 Year
  Sex: Female
  Weight: 60 kg

DRUGS (16)
  1. OXALIPLATIN. [Suspect]
     Active Substance: OXALIPLATIN
     Indication: RECTAL CANCER
     Dosage: UNK UNK, 2X/WEEK
     Route: 042
     Dates: start: 20160715, end: 20160715
  2. AFLIBERCEPT [Suspect]
     Active Substance: AFLIBERCEPT
     Dosage: 256 MG, 2X/WEEK
     Route: 042
     Dates: start: 20160812, end: 20160812
  3. OXALIPLATIN. [Suspect]
     Active Substance: OXALIPLATIN
     Dosage: 140 MG, 2X/WEEK
     Route: 042
     Dates: start: 20160812, end: 20160812
  4. AFLIBERCEPT [Suspect]
     Active Substance: AFLIBERCEPT
     Indication: RECTAL CANCER
     Dosage: UNK, 2X/WEEK
     Route: 042
     Dates: start: 20160715, end: 20160715
  5. 5-FU [Suspect]
     Active Substance: FLUOROURACIL
     Dosage: 526 MG, 2X/WEEK
     Route: 040
     Dates: start: 20160919, end: 20160919
  6. ENALAPRIL [Concomitant]
     Active Substance: ENALAPRIL
     Indication: HYPERTENSION
     Dosage: 20 MG, 1X/DAY
     Route: 048
  7. LEUCOVORIN. [Suspect]
     Active Substance: LEUCOVORIN
     Indication: RECTAL CANCER
     Dosage: 263 MG, 2X/WEEK
     Route: 042
     Dates: start: 20160919, end: 20160919
  8. LEUCOVORIN. [Suspect]
     Active Substance: LEUCOVORIN
     Dosage: UNK, 2X/WEEK
     Route: 042
     Dates: start: 20160715, end: 20160715
  9. 5-FU [Suspect]
     Active Substance: FLUOROURACIL
     Dosage: 658 MG, 2X/WEEK
     Route: 040
     Dates: start: 20160812, end: 20160812
  10. OXALIPLATIN. [Suspect]
     Active Substance: OXALIPLATIN
     Dosage: 112 MG, 2X/WEEK
     Route: 042
     Dates: start: 20160919, end: 20160919
  11. 5-FU [Suspect]
     Active Substance: FLUOROURACIL
     Indication: RECTAL CANCER
     Dosage: 3157 MG, 2X/WEEK
     Route: 042
     Dates: start: 20160919, end: 20160919
  12. LEUCOVORIN. [Suspect]
     Active Substance: LEUCOVORIN
     Dosage: 329 MG, 2X/WEEK
     Route: 042
     Dates: start: 20160812, end: 20160812
  13. 5-FU [Suspect]
     Active Substance: FLUOROURACIL
     Dosage: 3947 MG, 2X/WEEK
     Route: 042
     Dates: start: 20160814, end: 20160814
  14. CAPECITABINE. [Suspect]
     Active Substance: CAPECITABINE
     Route: 065
  15. 5-FU [Suspect]
     Active Substance: FLUOROURACIL
     Dosage: UNK
     Route: 042
     Dates: start: 20160715, end: 20160715
  16. 5-FU [Suspect]
     Active Substance: FLUOROURACIL
     Dosage: UNK, 2X/WEEK
     Route: 040
     Dates: start: 20160715, end: 20160715

REACTIONS (1)
  - Colitis [Recovered/Resolved]

NARRATIVE: CASE EVENT DATE: 20160819
